FAERS Safety Report 14029592 (Version 2)
Quarter: 2017Q4

REPORT INFORMATION
  Report Type: Spontaneous
  Country: US (occurrence: US)
  Receive Date: 20170930
  Receipt Date: 20171010
  Transmission Date: 20180321
  Serious: Yes (Disabling)
  Sender: FDA-Public Use
  Company Number: US-SA-2017SA125525

PATIENT
  Age: 61 Year
  Sex: Male

DRUGS (1)
  1. AUBAGIO [Suspect]
     Active Substance: TERIFLUNOMIDE
     Indication: MULTIPLE SCLEROSIS
     Route: 048
     Dates: start: 20170331, end: 201707

REACTIONS (6)
  - Multiple sclerosis relapse [Unknown]
  - Malaise [Unknown]
  - Lethargy [Unknown]
  - Gait disturbance [Unknown]
  - Skin ulcer [Unknown]
  - Asthenia [Unknown]

NARRATIVE: CASE EVENT DATE: 201704
